FAERS Safety Report 6195065-3 (Version None)
Quarter: 2009Q2

REPORT INFORMATION
  Report Type: 
  Country: None (occurrence: None)
  Receive Date: 20090514
  Receipt Date: 20090504
  Transmission Date: 20091009
  Serious: Yes (Hospitalization)
  Sender: FDA-Public Use
  Company Number: 1000006071

PATIENT
  Age: 36 Year
  Sex: Male

DRUGS (1)
  1. CARBAMAZEPINE [Suspect]
     Indication: ENCEPHALITIS
     Dates: start: 20020101

REACTIONS (6)
  - ALANINE AMINOTRANSFERASE INCREASED [None]
  - ASPARTATE AMINOTRANSFERASE INCREASED [None]
  - DRUG RASH WITH EOSINOPHILIA AND SYSTEMIC SYMPTOMS [None]
  - HISTIOCYTIC NECROTISING LYMPHADENITIS [None]
  - LUPUS NEPHRITIS [None]
  - SYSTEMIC LUPUS ERYTHEMATOSUS [None]
